FAERS Safety Report 13643962 (Version 1)
Quarter: 2017Q2

REPORT INFORMATION
  Report Type: Spontaneous
  Country: CO (occurrence: CO)
  Receive Date: 20170612
  Receipt Date: 20170612
  Transmission Date: 20170830
  Serious: Yes (Other)
  Sender: FDA-Public Use
  Company Number: CO-BRISTOL-MYERS SQUIBB COMPANY-BMS-2017-049596

PATIENT
  Age: 49 Year
  Sex: Female
  Weight: 76 kg

DRUGS (1)
  1. ORENCIA [Suspect]
     Active Substance: ABATACEPT
     Indication: RHEUMATOID ARTHRITIS
     Dosage: 750 MG, QMO
     Route: 042
     Dates: start: 20150812

REACTIONS (1)
  - Otitis media chronic [Not Recovered/Not Resolved]

NARRATIVE: CASE EVENT DATE: 20170603
